FAERS Safety Report 11663331 (Version 2)
Quarter: 2015Q4

REPORT INFORMATION
  Report Type: Spontaneous
  Country: IT (occurrence: IT)
  Receive Date: 20151027
  Receipt Date: 20151118
  Transmission Date: 20160304
  Serious: Yes (Hospitalization)
  Sender: FDA-Public Use
  Company Number: IT-ACCORD-028875

PATIENT
  Age: 73 Year
  Sex: Male
  Weight: 66 kg

DRUGS (7)
  1. EUTIROX [Concomitant]
     Active Substance: LEVOTHYROXINE SODIUM
  2. FLUOROURACIL. [Suspect]
     Active Substance: FLUOROURACIL
     Indication: METASTASES TO LYMPH NODES
     Dosage: ALSO RECEIVED FROM 31-OCT-2014 TO 12-JAN-2015
     Route: 040
     Dates: start: 20141116, end: 20150211
  3. FOSINOPRIL [Concomitant]
     Active Substance: FOSINOPRIL
  4. FOSTER [Concomitant]
     Active Substance: BECLOMETHASONE\FORMOTEROL
  5. SPIRIVA [Concomitant]
     Active Substance: TIOTROPIUM BROMIDE MONOHYDRATE
  6. OXALIPLATIN. [Suspect]
     Active Substance: OXALIPLATIN
     Indication: METASTASES TO LYMPH NODES
     Route: 042
     Dates: start: 20141116, end: 20150211
  7. LEVOFOLINIC ACID [Concomitant]
     Active Substance: LEVOLEUCOVORIN
     Dosage: 270 MG
     Route: 042
     Dates: start: 20141116, end: 20150211

REACTIONS (7)
  - Paraesthesia [Unknown]
  - Haematuria [Unknown]
  - Off label use [Unknown]
  - Constipation [Recovering/Resolving]
  - Skin exfoliation [Unknown]
  - Skin fissures [Unknown]
  - Nausea [Recovering/Resolving]

NARRATIVE: CASE EVENT DATE: 20141215
